FAERS Safety Report 6889788-8 (Version None)
Quarter: 2010Q3

REPORT INFORMATION
  Report Type: 
  Country: None (occurrence: None)
  Receive Date: 20100730
  Receipt Date: 20080502
  Transmission Date: 20110219
  Serious: No
  Sender: FDA-Public Use
  Company Number: US-PFIZER INC-2008025054

PATIENT
  Sex: Female

DRUGS (3)
  1. LIPITOR [Suspect]
     Dates: end: 20080320
  2. CALCIUM [Concomitant]
  3. VITAMIN D [Concomitant]

REACTIONS (2)
  - BONE DENSITY DECREASED [None]
  - MALABSORPTION [None]
